FAERS Safety Report 7903462-8 (Version None)
Quarter: 2011Q4

REPORT INFORMATION
  Report Type: 
  Country: None (occurrence: None)
  Receive Date: 20111107
  Receipt Date: 20111031
  Transmission Date: 20120403
  Serious: Yes (Other)
  Sender: FDA-Public Use
  Company Number: 2QLT2011US01030

PATIENT
  Age: 70 Year
  Sex: Male

DRUGS (8)
  1. ASPIRIN [Concomitant]
  2. LOSARTAN [Concomitant]
  3. LIPITOR [Concomitant]
  4. VISUDYNE [Suspect]
     Indication: AGE-RELATED MACULAR DEGENERATION
     Dates: start: 20110713, end: 20110713
  5. LUCENTIS [Suspect]
     Indication: AGE-RELATED MACULAR DEGENERATION
     Dosage: 0.5 MG ONCE EY
     Dates: start: 20110715, end: 20110715
  6. AMLODIPINE [Concomitant]
  7. LISINOPRIL [Concomitant]
  8. CLONIDINE [Concomitant]

REACTIONS (6)
  - RETINAL ARTERY OCCLUSION [None]
  - VISUAL ACUITY REDUCED [None]
  - DETACHMENT OF RETINAL PIGMENT EPITHELIUM [None]
  - PUPILLARY REFLEX IMPAIRED [None]
  - BLOOD PRESSURE INCREASED [None]
  - SCOTOMA [None]
